FAERS Safety Report 11652856 (Version 2)
Quarter: 2016Q1

REPORT INFORMATION
  Report Type: Spontaneous
  Country: US (occurrence: US)
  Receive Date: 20151022
  Receipt Date: 20160319
  Transmission Date: 20160525
  Serious: No
  Sender: FDA-Public Use
  Company Number: US-CELGENEUS-USA-2015095503

PATIENT
  Age: 35 Year
  Sex: Male

DRUGS (4)
  1. OTEZLA [Suspect]
     Active Substance: APREMILAST
     Indication: PSORIASIS
     Dosage: 60 MILLIGRAM
     Route: 048
     Dates: start: 20150914
  2. STELARA [Concomitant]
     Active Substance: USTEKINUMAB
     Indication: PSORIASIS
     Dosage: 90 MILLIGRAM
     Route: 058
     Dates: start: 20150108
  3. HYDROCORTISONE BUTYRATE. [Concomitant]
     Active Substance: HYDROCORTISONE BUTYRATE
     Indication: PSORIASIS
     Dosage: .1 PERCENT
     Route: 065
  4. CLOBETASOL [Concomitant]
     Active Substance: CLOBETASOL
     Indication: PSORIASIS
     Route: 061

REACTIONS (2)
  - Diarrhoea [Recovered/Resolved with Sequelae]
  - Nausea [Recovered/Resolved]

NARRATIVE: CASE EVENT DATE: 20150920
